FAERS Safety Report 9443088 (Version 2)
Quarter: 2013Q3

REPORT INFORMATION
  Report Type: Spontaneous
  Country: FR (occurrence: FR)
  Receive Date: 20130806
  Receipt Date: 20130827
  Transmission Date: 20140515
  Serious: Yes (Hospitalization)
  Sender: FDA-Public Use
  Company Number: FR-TEVA-422800ISR

PATIENT
  Age: 74 Year
  Sex: Female

DRUGS (6)
  1. OXALIPLATINA TEVA [Suspect]
     Indication: COLON CANCER
     Route: 041
     Dates: start: 20130611, end: 20130611
  2. OXALIPLATINA TEVA [Suspect]
     Dates: start: 200905, end: 200905
  3. LEVOFOLINATE DE SODIUM MEDAC [Suspect]
     Indication: COLON CANCER
     Route: 042
     Dates: start: 20130611, end: 20130611
  4. METHYLPREDNISOLONE MERCK [Concomitant]
     Indication: PREMEDICATION
     Route: 042
     Dates: start: 20130611, end: 20130611
  5. ZOPHREN 8 MG/4ML [Concomitant]
     Indication: PREMEDICATION
     Route: 042
     Dates: start: 20130611, end: 20130611
  6. AVASTIN [Concomitant]
     Indication: COLON CANCER
     Route: 041
     Dates: start: 20130611, end: 20130611

REACTIONS (4)
  - Drug hypersensitivity [Recovered/Resolved]
  - Flushing [Recovered/Resolved]
  - Dyspnoea [Recovered/Resolved]
  - Agitation [Recovered/Resolved]
